FAERS Safety Report 14997723 (Version 3)
Quarter: 2018Q4

REPORT INFORMATION
  Report Type: Spontaneous
  Country: BR (occurrence: BR)
  Receive Date: 20180611
  Receipt Date: 20181227
  Transmission Date: 20190204
  Serious: Yes (Hospitalization, Other)
  Sender: FDA-Public Use
  Company Number: BR-BIOMARINAP-BR-2018-118576

PATIENT
  Age: 42 Year
  Sex: Male
  Weight: 41 kg

DRUGS (1)
  1. ALDURAZYME [Suspect]
     Active Substance: LARONIDASE
     Indication: MUCOPOLYSACCHARIDOSIS
     Dosage: 16 DF, UNK
     Route: 041
     Dates: start: 20040601

REACTIONS (4)
  - Inappropriate schedule of product administration [Unknown]
  - Urinary tract infection [Not Recovered/Not Resolved]
  - Urinary tract disorder [Recovering/Resolving]
  - Urinary retention [Not Recovered/Not Resolved]
